FAERS Safety Report 5306122-5 (Version None)
Quarter: 2007Q2

REPORT INFORMATION
  Report Type: 
  Country: None (occurrence: None)
  Receive Date: 20070424
  Receipt Date: 20070423
  Transmission Date: 20071010
  Serious: Yes (Other)
  Sender: FDA-Public Use
  Company Number: US-BRISTOL-MYERS SQUIBB COMPANY-13757067

PATIENT

DRUGS (2)
  1. CARBOPLATIN [Suspect]
  2. PACLITAXEL [Suspect]

REACTIONS (1)
  - PULMONARY HAEMORRHAGE [None]
